FAERS Safety Report 5208676-6 (Version None)
Quarter: 2007Q1

REPORT INFORMATION
  Report Type: 
  Country: None (occurrence: None)
  Receive Date: 20070116
  Receipt Date: 20070108
  Transmission Date: 20070707
  Serious: Yes (Other)
  Sender: FDA-Public Use
  Company Number: PHEH2006US14422

PATIENT
  Sex: Male

DRUGS (1)
  1. ZOMETA [Suspect]
     Indication: METASTASES TO BONE
     Dosage: EVERY 3 WEEKS

REACTIONS (1)
  - PAIN IN JAW [None]
